FAERS Safety Report 23836701 (Version 1)
Quarter: 2024Q2

REPORT INFORMATION
  Report Type: Spontaneous
  Country: CA (occurrence: CA)
  Receive Date: 20240509
  Receipt Date: 20240509
  Transmission Date: 20240716
  Serious: Yes (Other)
  Sender: FDA-Public Use
  Company Number: CA-TEVA-VS-3196163

PATIENT

DRUGS (1)
  1. CLINDAMYCIN [Suspect]
     Active Substance: CLINDAMYCIN
     Indication: Antibiotic therapy
     Route: 065

REACTIONS (5)
  - Abdominal pain upper [Unknown]
  - Asthenia [Unknown]
  - Dizziness [Unknown]
  - Fatigue [Unknown]
  - Oesophageal pain [Unknown]
